FAERS Safety Report 4736779-9 (Version None)
Quarter: 2005Q3

REPORT INFORMATION
  Report Type: 
  Country: None (occurrence: None)
  Receive Date: 20050804
  Receipt Date: 20050712
  Transmission Date: 20060218
  Serious: Yes (Other)
  Sender: FDA-Public Use
  Company Number: US_0505117534

PATIENT
  Age: 86 Year
  Sex: Female
  Weight: 54 kg

DRUGS (9)
  1. FORTEO [Suspect]
     Indication: OSTEOPOROSIS
     Dosage: 20 UG DAY
     Dates: start: 20040501, end: 20050222
  2. LIPITOR [Concomitant]
  3. SYNTHROID [Concomitant]
  4. ATENOLOL [Concomitant]
  5. ASPIRIN [Concomitant]
  6. OS-CAL [Concomitant]
  7. NEXIUM [Concomitant]
  8. DITROPAN [Concomitant]
  9. VITAMIN D [Concomitant]

REACTIONS (6)
  - BLOOD ALKALINE PHOSPHATASE INCREASED [None]
  - EXOSTOSIS [None]
  - HEADACHE [None]
  - KYPHOSIS [None]
  - MYALGIA [None]
  - PAIN [None]
